FAERS Safety Report 4477994-1 (Version None)
Quarter: 2004Q4

REPORT INFORMATION
  Report Type: 
  Country: None (occurrence: None)
  Receive Date: 20041018
  Receipt Date: 20041013
  Transmission Date: 20050328
  Serious: Yes (Hospitalization)
  Sender: FDA-Public Use
  Company Number: ES-MERCK-0410ESP00053

PATIENT
  Age: 51 Year
  Sex: Male

DRUGS (3)
  1. CANCIDAS [Suspect]
     Route: 042
     Dates: start: 20040604, end: 20040610
  2. MEROPENEM [Concomitant]
     Route: 042
     Dates: start: 20040524, end: 20040606
  3. TEICOPLANIN [Concomitant]
     Route: 042
     Dates: start: 20040529, end: 20040604

REACTIONS (3)
  - BLOOD ALKALINE PHOSPHATASE INCREASED [None]
  - GAMMA-GLUTAMYLTRANSFERASE INCREASED [None]
  - HYPERBILIRUBINAEMIA [None]
